FAERS Safety Report 20013335 (Version 1)
Quarter: 2021Q4

REPORT INFORMATION
  Report Type: Spontaneous
  Country: CN (occurrence: CN)
  Receive Date: 20211029
  Receipt Date: 20211029
  Transmission Date: 20220303
  Serious: Yes (Disabling)
  Sender: FDA-Public Use
  Company Number: CN-PFIZER INC-202101419009

PATIENT
  Age: 75 Year
  Sex: Male
  Weight: 90 kg

DRUGS (1)
  1. NORVASC [Suspect]
     Active Substance: AMLODIPINE BESYLATE
     Indication: Hypertension
     Dosage: 1 DF, 1X/DAY
     Route: 048
     Dates: start: 20200710, end: 20210828

REACTIONS (2)
  - Oedema peripheral [Recovering/Resolving]
  - Movement disorder [Recovering/Resolving]

NARRATIVE: CASE EVENT DATE: 20210728
